FAERS Safety Report 5028644-7 (Version None)
Quarter: 2006Q2

REPORT INFORMATION
  Report Type: 
  Country: None (occurrence: None)
  Receive Date: 20060619
  Receipt Date: 20060615
  Transmission Date: 20061013
  Serious: Yes (Death, Hospitalization)
  Sender: FDA-Public Use
  Company Number: ES-NOVOPROD-254158

PATIENT
  Age: 58 Year
  Sex: Male
  Weight: 70 kg

DRUGS (6)
  1. NOVOSEVEN [Suspect]
     Indication: CEREBRAL HAEMORRHAGE
     Dosage: 80 UG/KG, UNK
     Route: 042
     Dates: start: 20060613
  2. PARACETAMOL [Concomitant]
     Dosage: 1 G, UNK
     Route: 042
     Dates: start: 20060614
  3. AMOXICILINA + CLAVULANICO [Concomitant]
     Dosage: 1 G, UNK
     Route: 042
     Dates: start: 20060614
  4. LABETALOL [Concomitant]
     Dosage: 100 MG, UNK
     Route: 042
     Dates: start: 20060613
  5. INSULIN ACTRAPID                   /00646001/ [Concomitant]
     Dosage: 24 IU, UNK
     Route: 058
     Dates: start: 20060614
  6. CYCLOSPORINE [Concomitant]
     Dosage: 25 MG, QD
     Route: 048

REACTIONS (3)
  - ACUTE PULMONARY OEDEMA [None]
  - CARDIAC FAILURE [None]
  - RESPIRATORY FAILURE [None]
